FAERS Safety Report 8562996-6 (Version None)
Quarter: 2012Q3

REPORT INFORMATION
  Report Type: 
  Country: None (occurrence: None)
  Receive Date: 20120802
  Receipt Date: 20120722
  Transmission Date: 20120928
  Serious: Yes (Hospitalization)
  Sender: FDA-Public Use
  Company Number: US-AMGEN-USASP2012045543

PATIENT
  Age: 75 Year
  Sex: Female

DRUGS (2)
  1. ENBREL [Suspect]
     Indication: RHEUMATOID ARTHRITIS
     Dosage: 25 MG, 2 TIMES/WK
     Dates: start: 19980101, end: 20120713
  2. HYDROXYCHLOROQUINE SULFATE [Concomitant]
     Indication: DIARRHOEA
     Dosage: UNK
     Dates: start: 20120601, end: 20120601

REACTIONS (8)
  - PNEUMONIA [None]
  - NERVOUS SYSTEM DISORDER [None]
  - ABDOMINAL DISCOMFORT [None]
  - ASTHENIA [None]
  - RHEUMATOID ARTHRITIS [None]
  - NIGHT SWEATS [None]
  - DECREASED APPETITE [None]
  - DIARRHOEA [None]
